FAERS Safety Report 4446172-4 (Version None)
Quarter: 2004Q3

REPORT INFORMATION
  Report Type: 
  Country: None (occurrence: None)
  Receive Date: 20040908
  Receipt Date: 20040826
  Transmission Date: 20050211
  Serious: Yes (Hospitalization)
  Sender: FDA-Public Use
  Company Number: GB-BRISTOL-MYERS SQUIBB COMPANY-12684320

PATIENT
  Age: 66 Year
  Sex: Male
  Weight: 103 kg

DRUGS (2)
  1. CISPLATIN [Suspect]
     Indication: BLADDER CANCER
     Dosage: THERAPY DATES: 22-MAR TO 21-APR / CUM. DOSE: 294 MG 22-MAR TO 09-JUN; CUM. DOSE: 588 MG
     Route: 042
     Dates: start: 20040421, end: 20040421
  2. GEMCITABINE [Suspect]
     Indication: BLADDER CANCER
     Dosage: THERAPY DATES: 22-MAR TO 28-APR; CUM. DOSE: 10500 MG 22-MAR TO 16-JUN; CUM. DOSE: 2100
     Route: 042
     Dates: start: 20040428, end: 20040428

REACTIONS (4)
  - ANAEMIA [None]
  - PYREXIA [None]
  - RENAL ABSCESS [None]
  - STAPHYLOCOCCAL INFECTION [None]
